FAERS Safety Report 8894208 (Version 1)
Quarter: 2012Q4

REPORT INFORMATION
  Report Type: 
  Country: US (occurrence: US)
  Receive Date: 20121108
  Receipt Date: 20121108
  Transmission Date: 20130627
  Serious: No
  Sender: FDA-Public Use
  Company Number: US-009507513-1211USA000653

PATIENT
  Age: 75 Year
  Sex: Female

DRUGS (1)
  1. NASONEX [Suspect]
     Indication: NASAL POLYPS
     Dosage: UNK
     Route: 045
     Dates: start: 2004, end: 2009

REACTIONS (1)
  - Anosmia [Not Recovered/Not Resolved]
